FAERS Safety Report 5413458-6 (Version None)
Quarter: 2007Q3

REPORT INFORMATION
  Report Type: 
  Country: None (occurrence: None)
  Receive Date: 20070809
  Receipt Date: 20070809
  Transmission Date: 20080115
  Serious: Yes (Life-Threatening, Hospitalization)
  Sender: FDA-Public Use
  Company Number: None

PATIENT
  Age: 53 Year
  Sex: Male
  Weight: 83.9154 kg

DRUGS (2)
  1. ACTOS [Suspect]
     Indication: DIABETES MELLITUS
     Dates: start: 20070715, end: 20070801
  2. METFORMIN HCL [Suspect]
     Dates: start: 20070523, end: 20070808

REACTIONS (9)
  - AMNESIA [None]
  - ASTHENIA [None]
  - CLUMSINESS [None]
  - COLD SWEAT [None]
  - CONFUSIONAL STATE [None]
  - FALL [None]
  - HUNGER [None]
  - HYPOGLYCAEMIA [None]
  - SYNCOPE [None]
